FAERS Safety Report 6931679-8 (Version None)
Quarter: 2010Q3

REPORT INFORMATION
  Report Type: 
  Country: None (occurrence: None)
  Receive Date: 20100819
  Receipt Date: 20100809
  Transmission Date: 20110219
  Serious: Yes (Other)
  Sender: FDA-Public Use
  Company Number: US-ALEXION-A201000958

PATIENT
  Sex: Male

DRUGS (4)
  1. SOLIRIS [Suspect]
     Indication: PAROXYSMAL NOCTURNAL HAEMOGLOBINURIA
     Dosage: UNK
     Route: 042
     Dates: start: 20100807
  2. FLUCONAZOLE [Concomitant]
     Indication: PROPHYLAXIS
     Dosage: UNK
  3. PRIMAXIN                           /00788801/ [Concomitant]
     Indication: PROPHYLAXIS
     Dosage: UNK
  4. MENACTRA [Concomitant]
     Indication: IMMUNISATION
     Dosage: UNK
     Dates: start: 20100807, end: 20100807

REACTIONS (2)
  - DEPRESSION [None]
  - INFLUENZA LIKE ILLNESS [None]
